FAERS Safety Report 4457069-8 (Version None)
Quarter: 2004Q3

REPORT INFORMATION
  Report Type: 
  Country: None (occurrence: None)
  Receive Date: 20040923
  Receipt Date: 20010803
  Transmission Date: 20050211
  Serious: Yes (Hospitalization)
  Sender: FDA-Public Use
  Company Number: US-ABBOTT-01P-163-0109907-00

PATIENT
  Sex: Female
  Weight: 63.56 kg

DRUGS (31)
  1. BIAXIN [Suspect]
     Indication: NASAL CONGESTION
     Dates: start: 20010504
  2. BIAXIN [Suspect]
     Indication: PYREXIA
     Route: 048
     Dates: start: 20010511
  3. BIAXIN [Suspect]
     Indication: PHARYNGOLARYNGEAL PAIN
  4. BIAXIN [Suspect]
     Indication: ASTHMA
  5. SINGULAIR [Suspect]
     Indication: ASTHMA
     Route: 048
     Dates: start: 20010516
  6. VERAPAMIL [Concomitant]
     Indication: DRUG USE FOR UNKNOWN INDICATION
  7. CLONIDINE HCL [Concomitant]
     Indication: DRUG USE FOR UNKNOWN INDICATION
  8. CLONIDINE HCL [Concomitant]
  9. MULTIVITAMIN [Concomitant]
     Indication: DRUG USE FOR UNKNOWN INDICATION
  10. AURALGAN [Concomitant]
     Indication: EAR PAIN
  11. ALKA-SELTZER COLD [Concomitant]
     Indication: DRUG USE FOR UNKNOWN INDICATION
  12. CORTISPORIN EAR DROPS [Concomitant]
     Indication: DRUG USE FOR UNKNOWN INDICATION
  13. ALLEGRA-D [Concomitant]
     Indication: DRUG USE FOR UNKNOWN INDICATION
  14. ACETYLSALICYLIC ACID [Concomitant]
     Indication: DRUG USE FOR UNKNOWN INDICATION
  15. ALBUTEROL [Concomitant]
     Indication: DRUG USE FOR UNKNOWN INDICATION
     Dosage: 1 -2 PUFFS
     Route: 055
     Dates: start: 20010502
  16. SALMETEROL XINAFOATE [Concomitant]
     Indication: DRUG USE FOR UNKNOWN INDICATION
     Dates: start: 20010205
  17. FLUTICASONE PROPIONATE [Concomitant]
     Indication: DRUG USE FOR UNKNOWN INDICATION
     Dates: start: 20010205
  18. PREDNISONE [Concomitant]
     Indication: DRUG USE FOR UNKNOWN INDICATION
     Route: 048
     Dates: start: 20010504
  19. PREDNISONE [Concomitant]
     Dates: start: 20010513
  20. METHYLPREDNISOLONE SODIUM SUCCINATE [Concomitant]
     Indication: DYSPNOEA
     Route: 050
     Dates: start: 20010504
  21. NICOTINE [Concomitant]
     Indication: EX-SMOKER
  22. NICOTINE [Concomitant]
     Indication: ASTHMA
  23. ALUMINIUM HYDROXIDE GEL, DRIED [Concomitant]
     Indication: DRUG USE FOR UNKNOWN INDICATION
     Dates: start: 20010606
  24. BUPROPION HYDROCHLORIDE [Concomitant]
     Indication: DRUG USE FOR UNKNOWN INDICATION
     Dates: start: 20010606
  25. FAMOTIDINE [Concomitant]
     Indication: DRUG USE FOR UNKNOWN INDICATION
     Dates: start: 20010606
  26. NICOTINE [Concomitant]
     Indication: DRUG USE FOR UNKNOWN INDICATION
     Dosage: PATCH
     Dates: start: 20010606
  27. OLOPATADINE HYDROCHLORIDE [Concomitant]
     Indication: DRUG USE FOR UNKNOWN INDICATION
  28. TEMAZEPAM [Concomitant]
     Indication: DRUG USE FOR UNKNOWN INDICATION
  29. CLONAZEPAM [Concomitant]
     Indication: ANXIETY
     Route: 048
  30. METOPROLOL TARTRATE [Concomitant]
     Indication: PALPITATIONS
  31. AZITHROMYCIN [Concomitant]
     Indication: DRUG USE FOR UNKNOWN INDICATION
     Dates: start: 20010501

REACTIONS (45)
  - ABDOMINAL DISTENSION [None]
  - ABDOMINAL PAIN UPPER [None]
  - ADVERSE DRUG REACTION [None]
  - ANURIA [None]
  - ASTHENIA [None]
  - ASTHMA [None]
  - ATRIAL FIBRILLATION [None]
  - BLOOD AMYLASE INCREASED [None]
  - BLOOD PRESSURE DECREASED [None]
  - BLOOD PRESSURE IMMEASURABLE [None]
  - COMPUTERISED TOMOGRAM ABNORMAL [None]
  - CONDITION AGGRAVATED [None]
  - CYANOSIS [None]
  - DEFAECATION URGENCY [None]
  - DEHYDRATION [None]
  - DIARRHOEA [None]
  - DIZZINESS [None]
  - DRUG HYPERSENSITIVITY [None]
  - DYSPNOEA [None]
  - ELECTROCARDIOGRAM ABNORMAL [None]
  - ELECTROCARDIOGRAM QT CORRECTED INTERVAL PROLONGED [None]
  - ELECTROCARDIOGRAM QT SHORTENED [None]
  - FAECAL OCCULT BLOOD POSITIVE [None]
  - FATIGUE [None]
  - FEMORAL PULSE ABNORMAL [None]
  - HAEMATEMESIS [None]
  - HEART RATE DECREASED [None]
  - HEART RATE IRREGULAR [None]
  - HEPATIC FAILURE [None]
  - HEPATORENAL SYNDROME [None]
  - HYPERSENSITIVITY [None]
  - IMPLANT SITE REACTION [None]
  - LETHARGY [None]
  - LIPASE INCREASED [None]
  - MULTI-ORGAN FAILURE [None]
  - PEDAL PULSE ABNORMAL [None]
  - PNEUMONIA [None]
  - PULSE ABSENT [None]
  - RADIAL PULSE ABNORMAL [None]
  - RENAL FAILURE [None]
  - SEBORRHOEIC KERATOSIS [None]
  - SEPSIS [None]
  - SKIN LESION [None]
  - SUPRAPUBIC PAIN [None]
  - VOMITING [None]
